FAERS Safety Report 14078635 (Version 1)
Quarter: 2017Q4

REPORT INFORMATION
  Report Type: Spontaneous
  Country: US (occurrence: US)
  Receive Date: 20171012
  Receipt Date: 20171012
  Transmission Date: 20180321
  Serious: Yes (Other)
  Sender: FDA-Public Use
  Company Number: None

PATIENT
  Age: 59 Year
  Sex: Female
  Weight: 85.5 kg

DRUGS (4)
  1. DULCOLAX NOS [Suspect]
     Active Substance: BISACODYL OR DOCUSATE SODIUM
     Indication: COLONOSCOPY
     Dosage: ?          QUANTITY:10 TABLET(S);OTHER FREQUENCY:UP TO 3 PER DAY;?
     Route: 048
     Dates: start: 20171011, end: 20171011
  2. DECONGESTANT [Concomitant]
     Active Substance: UNSPECIFIED INGREDIENT
  3. VITAMIN D [Concomitant]
     Active Substance: CHOLECALCIFEROL
  4. ANTI HISTIMINE [Concomitant]

REACTIONS (6)
  - Muscle spasms [None]
  - Asthenia [None]
  - Syncope [None]
  - Vomiting [None]
  - Hyperhidrosis [None]
  - Blood pressure decreased [None]

NARRATIVE: CASE EVENT DATE: 20171011
